FAERS Safety Report 9698599 (Version 2)
Quarter: 2014Q1

REPORT INFORMATION
  Report Type: Spontaneous
  Country: AU (occurrence: AU)
  Receive Date: 20131120
  Receipt Date: 20140110
  Transmission Date: 20141002
  Serious: Yes (Hospitalization)
  Sender: FDA-Public Use
  Company Number: AU-GLAXOSMITHKLINE-B0945689A

PATIENT
  Age: 79 Year
  Sex: Female
  Weight: 50 kg

DRUGS (8)
  1. REVOLADE [Suspect]
     Indication: PRODUCT USED FOR UNKNOWN INDICATION
     Dosage: 12.5MG ALTERNATE DAYS
     Route: 065
     Dates: start: 20130918
  2. ATORVASTATIN [Concomitant]
     Indication: BLOOD CHOLESTEROL
     Dosage: 40MG PER DAY
     Route: 065
  3. DIABEX [Concomitant]
     Indication: DIABETES MELLITUS
     Dosage: 500MG TWICE PER DAY
     Route: 065
  4. DIAMICRON [Concomitant]
     Indication: DIABETES MELLITUS
     Dosage: 60MG IN THE MORNING
     Route: 065
  5. FERRO-GRADUMET [Concomitant]
     Indication: ANAEMIA
     Dosage: 325MG PER DAY
  6. IKOREL [Concomitant]
     Indication: ANGINA PECTORIS
     Dosage: 10MG TWICE PER DAY
     Route: 065
  7. SOZOL [Concomitant]
     Indication: ILL-DEFINED DISORDER
     Dosage: 40MG TWICE PER DAY
     Route: 065
  8. VITAMIN B12 [Concomitant]
     Indication: VITAMIN B12 DEFICIENCY
     Dosage: 100MCG PER DAY
     Route: 065

REACTIONS (1)
  - Delirium [Recovered/Resolved]
